FAERS Safety Report 17582007 (Version 2)
Quarter: 2021Q1

REPORT INFORMATION
  Report Type: Spontaneous
  Country: DE (occurrence: DE)
  Receive Date: 20200325
  Receipt Date: 20210322
  Transmission Date: 20210419
  Serious: No
  Sender: FDA-Public Use
  Company Number: DE-TOLMAR, INC.-20DE020524

PATIENT
  Sex: Male
  Weight: 80 kg

DRUGS (1)
  1. ELIGARD [Suspect]
     Active Substance: LEUPROLIDE ACETATE
     Indication: PRODUCT USED FOR UNKNOWN INDICATION
     Dosage: 22.5 MG, Q 3 MONTH
     Route: 065
     Dates: start: 20200130

REACTIONS (6)
  - Underdose [Unknown]
  - Wrong technique in product usage process [Unknown]
  - Syringe issue [Unknown]
  - Accidental exposure to product [Unknown]
  - Product preparation error [Unknown]
  - Product leakage [Unknown]

NARRATIVE: CASE EVENT DATE: 20200130
